FAERS Safety Report 12716643 (Version 3)
Quarter: 2016Q4

REPORT INFORMATION
  Report Type: Spontaneous
  Country: GB (occurrence: GB)
  Receive Date: 20160906
  Receipt Date: 20161003
  Transmission Date: 20170207
  Serious: Yes (Hospitalization)
  Sender: FDA-Public Use
  Company Number: GB-PFIZER INC-2016408776

PATIENT
  Age: 14 Year
  Sex: Female

DRUGS (14)
  1. OMEPRAZOLE. [Suspect]
     Active Substance: OMEPRAZOLE
     Dosage: 5 ML ONCE DAILY (20MG/5ML)
     Route: 048
  2. PARACETAMOL [Concomitant]
     Active Substance: ACETAMINOPHEN
     Dosage: 10 ML 3X/DAY ORAL (250MG/5ML)
     Route: 048
  3. PHENYTOIN. [Suspect]
     Active Substance: PHENYTOIN
     Dosage: 5.5 ML TWICE DAILY (90MG/5ML)
     Route: 048
  4. LEVETIRACETAM. [Suspect]
     Active Substance: LEVETIRACETAM
     Dosage: 10 ML THREE TIMES DAILY (100MG/ML)
     Route: 048
  5. SODIUM PICOSULFATE [Concomitant]
     Active Substance: SODIUM PICOSULFATE
     Dosage: 10 ML 1X/DAY (5 MG/5ML)
     Route: 048
  6. AZITHROMYCIN ANHYDROUS. [Concomitant]
     Active Substance: AZITHROMYCIN ANHYDROUS
     Dosage: MONDAY, WEDNESDAY AND FRIDAY. 12.5 ML (200MG/5ML)
     Route: 048
  7. DORNASE ALFA [Concomitant]
     Active Substance: DORNASE ALFA
     Dosage: 1 DF 2X/DAY  (AMPOULE. 2.5MG/2.5ML)
  8. LACOSAMIDE. [Concomitant]
     Active Substance: LACOSAMIDE
     Dosage: 20 ML  ORAL 2X/DAY (10 MG/ML)
     Route: 048
  9. COLISTIMETHATE [Concomitant]
     Active Substance: COLISTIMETHATE SODIUM
     Dosage: 1DF 2X/DAY (AMPOULE. 1MILLION UNIT)
  10. LORAZEPAM. [Concomitant]
     Active Substance: LORAZEPAM
     Dosage: 10 ML ORAL 3X/DAY (1MG/5ML)
     Route: 048
  11. PREDNISOLONE. [Concomitant]
     Active Substance: PREDNISOLONE
     Dosage: 8DF 1X/DAY
     Route: 048
  12. MELATONIN [Concomitant]
     Active Substance: MELATONIN
     Dosage: 5 MG AT NIGHT.
     Route: 048
  13. CLOBAZAM [Concomitant]
     Active Substance: CLOBAZAM
     Dosage: 5 ML ORAL 2X/DAY (5MG/5ML)
     Route: 048
  14. PHENOBARBITAL. [Concomitant]
     Active Substance: PHENOBARBITAL
     Dosage: 7.5 ML 2X/DAY (50MG/5ML)
     Route: 048

REACTIONS (1)
  - Neutropenia [Unknown]
